FAERS Safety Report 6720114-0 (Version None)
Quarter: 2010Q2

REPORT INFORMATION
  Report Type: 
  Country: None (occurrence: None)
  Receive Date: 20100506
  Receipt Date: 20100423
  Transmission Date: 20101027
  Serious: Yes (Other)
  Sender: FDA-Public Use
  Company Number: DSA_43054_2010

PATIENT
  Sex: Male

DRUGS (7)
  1. ELONTRIL (ELONTRIL - BUPROPION HYDROCHLORIDE EXTENDED RELEASE) 150 MG [Suspect]
     Indication: DEPRESSION
     Dosage: (150 MG QD ORAL), (DF ORAL)
     Route: 048
     Dates: start: 20100301
  2. ELONTRIL (ELONTRIL - BUPROPION HYDROCHLORIDE EXTENDED RELEASE) 150 MG [Suspect]
     Indication: DEPRESSION
     Dosage: (150 MG QD ORAL), (DF ORAL)
     Route: 048
     Dates: start: 20100414
  3. MIRTAZAPINE [Concomitant]
  4. TIOTROPIUM [Concomitant]
  5. ELECTROLYTES [Concomitant]
  6. VITAMIN D [Concomitant]
  7. ASPARTATE POTASSIUM W/MAGNESIUM ASPARTATE [Concomitant]

REACTIONS (5)
  - AGGRESSION [None]
  - DISTURBANCE IN ATTENTION [None]
  - HOSTILITY [None]
  - HYPERSOMNIA [None]
  - TREMOR [None]
